FAERS Safety Report 7645955-7 (Version None)
Quarter: 2011Q3

REPORT INFORMATION
  Report Type: 
  Country: None (occurrence: None)
  Receive Date: 20110729
  Receipt Date: 20110722
  Transmission Date: 20111222
  Serious: Yes (Other)
  Sender: FDA-Public Use
  Company Number: US-RB-025479-11

PATIENT
  Age: 49 Year
  Sex: Male

DRUGS (1)
  1. SUBOXONE [Suspect]
     Indication: PRODUCT USED FOR UNKNOWN INDICATION
     Dosage: SUBLINGUAL FILM-DOSING INFORMATION UNKNOWN
     Route: 065

REACTIONS (3)
  - DYSPNOEA [None]
  - HEART RATE DECREASED [None]
  - NAUSEA [None]
